FAERS Safety Report 6895661-1 (Version None)
Quarter: 2010Q3

REPORT INFORMATION
  Report Type: 
  Country: None (occurrence: None)
  Receive Date: 20100730
  Receipt Date: 20100730
  Transmission Date: 20110219
  Serious: Yes (Other)
  Sender: FDA-Public Use
  Company Number: None

PATIENT
  Sex: Female
  Weight: 75.7507 kg

DRUGS (1)
  1. CARBOPLATIN [Suspect]
     Indication: OVARIAN CANCER
     Dosage: 460 MG 1 EVERY 3 W EEKS IV
     Route: 042
     Dates: start: 20100729

REACTIONS (3)
  - FEELING OF BODY TEMPERATURE CHANGE [None]
  - OXYGEN SATURATION DECREASED [None]
  - TREMOR [None]
